FAERS Safety Report 5329841-3 (Version None)
Quarter: 2007Q2

REPORT INFORMATION
  Report Type: 
  Country: None (occurrence: None)
  Receive Date: 20070521
  Receipt Date: 20070507
  Transmission Date: 20071010
  Serious: Yes (Disabling)
  Sender: FDA-Public Use
  Company Number: JP-ROCHE-495107

PATIENT
  Age: 23 Year
  Sex: Male

DRUGS (12)
  1. TAMIFLU [Suspect]
     Route: 048
     Dates: start: 20040124, end: 20040124
  2. ROHYPNOL [Concomitant]
     Route: 048
  3. CREMIN [Concomitant]
     Route: 048
  4. RISPERDAL [Concomitant]
     Route: 048
  5. AKINETON [Concomitant]
     Route: 048
  6. VEGETAMIN A [Concomitant]
     Route: 048
  7. NITRAZEPAM [Concomitant]
     Route: 048
  8. TEGRETOL [Concomitant]
     Dosage: FORM: ORAL FORMULATION (NOT OTHERWISE SPECIFIED)
     Route: 048
  9. MUCOSOLVAN [Concomitant]
     Route: 048
     Dates: start: 20040124, end: 20060124
  10. FLOMOX [Concomitant]
     Route: 048
     Dates: start: 20060124, end: 20060124
  11. MUCOSTA [Concomitant]
     Route: 048
     Dates: start: 20040124, end: 20050124
  12. CALONAL [Concomitant]
     Route: 048
     Dates: start: 20060124, end: 20060124

REACTIONS (5)
  - ABNORMAL BEHAVIOUR [None]
  - DEPRESSION [None]
  - DIZZINESS [None]
  - FALL [None]
  - MENTAL DISORDER [None]
